FAERS Safety Report 12205312 (Version 2)
Quarter: 2016Q1

REPORT INFORMATION
  Report Type: Spontaneous
  Country: BR (occurrence: BR)
  Receive Date: 20160323
  Receipt Date: 20160328
  Transmission Date: 20160526
  Serious: Yes (Other)
  Sender: FDA-Public Use
  Company Number: BR-JNJFOC-20160318318

PATIENT
  Age: 60 Year
  Sex: Male

DRUGS (3)
  1. HALOPERIDOL DECANOATE. [Suspect]
     Active Substance: HALOPERIDOL DECANOATE
     Indication: PSYCHOTIC DISORDER
     Route: 065
     Dates: start: 20160218
  2. DIAZEPAM. [Concomitant]
     Active Substance: DIAZEPAM
     Indication: PRODUCT USED FOR UNKNOWN INDICATION
     Route: 065
  3. RISPERIDONE. [Interacting]
     Active Substance: RISPERIDONE
     Indication: RHEUMATOID ARTHRITIS
     Route: 048

REACTIONS (8)
  - Product use issue [Unknown]
  - Psychomotor hyperactivity [Unknown]
  - Drug interaction [Unknown]
  - Catatonia [Unknown]
  - Delirium [Unknown]
  - Pyrexia [Unknown]
  - Muscle rigidity [Unknown]
  - Off label use [Unknown]

NARRATIVE: CASE EVENT DATE: 20160218
